FAERS Safety Report 9506309 (Version 1)
Quarter: 2013Q1

REPORT INFORMATION
  Report Type: Spontaneous
  Country: US (occurrence: None)
  Receive Date: 20130301
  Receipt Date: 20130301
  Transmission Date: 20140127
  Serious: Yes (Other)
  Sender: FDA-Public Use
  Company Number: RB-44825-2012

PATIENT
  Age: 31 Year
  Sex: Male

DRUGS (2)
  1. SUBOXONE 8 MG [Suspect]
     Indication: DRUG DEPENDENCE
     Dosage: SUBLINGUAL
     Dates: start: 2008, end: 20120906
  2. SUBOXONE 8 MG [Suspect]
     Indication: PAIN
     Dosage: SUBLINGUAL
     Dates: start: 2008, end: 20120906

REACTIONS (1)
  - Dental caries [None]
